FAERS Safety Report 10237641 (Version 3)
Quarter: 2014Q2

REPORT INFORMATION
  Report Type: Spontaneous
  Country: NO (occurrence: NO)
  Receive Date: 20140616
  Receipt Date: 20140618
  Transmission Date: 20141212
  Serious: Yes (Other)
  Sender: FDA-Public Use
  Company Number: NO-ROCHE-1356445

PATIENT
  Sex: Female

DRUGS (2)
  1. PERJETA [Suspect]
     Indication: HER-2 POSITIVE BREAST CANCER
     Route: 065
     Dates: start: 201402
  2. HERCEPTIN [Suspect]
     Indication: HER-2 POSITIVE BREAST CANCER
     Route: 065
     Dates: start: 201402

REACTIONS (3)
  - Rash [Recovered/Resolved with Sequelae]
  - Acne [Not Recovered/Not Resolved]
  - Pain [Not Recovered/Not Resolved]
